FAERS Safety Report 8042776-0 (Version None)
Quarter: 2012Q1

REPORT INFORMATION
  Report Type: 
  Country: None (occurrence: None)
  Receive Date: 20120112
  Receipt Date: 20120110
  Transmission Date: 20120608
  Serious: Yes (Other)
  Sender: FDA-Public Use
  Company Number: US-ROCHE-1004367

PATIENT
  Sex: Male
  Weight: 83.99 kg

DRUGS (2)
  1. ACCUTANE [Suspect]
     Indication: ACNE
     Route: 048
     Dates: start: 19980309, end: 19980413
  2. ACCUTANE [Suspect]
     Dosage: 40 MG ALTERNATING WITH 80 MG PER DAY
     Dates: start: 19980413, end: 19980701

REACTIONS (8)
  - INFLAMMATORY BOWEL DISEASE [None]
  - HAEMORRHOIDS [None]
  - PANIC ATTACK [None]
  - DEPRESSION [None]
  - COLITIS ULCERATIVE [None]
  - SUICIDAL IDEATION [None]
  - SUICIDE ATTEMPT [None]
  - DRY SKIN [None]
